FAERS Safety Report 8691517 (Version 2)
Quarter: 2012Q4

REPORT INFORMATION
  Report Type: 
  Country: US (occurrence: US)
  Receive Date: 20120730
  Receipt Date: 20121026
  Transmission Date: 20130627
  Serious: Yes (Hospitalization)
  Sender: FDA-Public Use
  Company Number: US-BAYER-2012-072084

PATIENT
  Age: 33 Year
  Sex: Female
  Weight: 77.1 kg

DRUGS (12)
  1. YASMIN [Suspect]
     Indication: ACNE
     Dosage: UNK
     Dates: start: 20020524, end: 20020701
  2. YASMIN [Suspect]
     Indication: ACNE
     Dosage: UNK
     Dates: start: 20030120
  3. YASMIN [Suspect]
     Indication: ACNE
     Dosage: UNK
     Dates: start: 20080922
  4. PROVENTIL [Concomitant]
     Indication: ASTHMA
     Dosage: UNK
     Route: 045
     Dates: start: 1982
  5. FLOVENT [Concomitant]
     Indication: ASTHMA
     Dosage: 2 puff
     Route: 045
     Dates: start: 2003
  6. SERVENT [Concomitant]
     Indication: ASTHMA
     Dosage: UNK
     Dates: start: 2002, end: 2003
  7. SINGULAIR [Concomitant]
     Indication: ASTHMA
     Dosage: UNK
     Dates: start: 2002, end: 2003
  8. PREDNISONE [Concomitant]
     Indication: ASTHMA
     Dosage: 50 mg, every day,
     Route: 048
  9. PREDNISONE [Concomitant]
     Indication: SINUS DISORDER
  10. PREDNISONE [Concomitant]
     Indication: ANGIOEDEMA
  11. ZYRTEC-D [Concomitant]
     Indication: MULTIPLE ALLERGIES
     Dosage: 10 UNK,
     Route: 048
  12. ALBUTEROL [Concomitant]
     Dosage: 1.25 mg/3 ml 0.042%; 2 puffs as needed
     Route: 045

REACTIONS (5)
  - Gallbladder disorder [None]
  - Biliary dyskinesia [None]
  - Injury [None]
  - Pain [None]
  - Pain [None]
